FAERS Safety Report 10222402 (Version 4)
Quarter: 2016Q3

REPORT INFORMATION
  Report Type: Spontaneous
  Country: US (occurrence: US)
  Receive Date: 20140606
  Receipt Date: 20160708
  Transmission Date: 20161109
  Serious: Yes (Other)
  Sender: FDA-Public Use
  Company Number: US-PERRIGO-14US005572

PATIENT
  Age: 54 Year
  Sex: Male
  Weight: 108.84 kg

DRUGS (2)
  1. OXYMETAZOLINE HCL [Suspect]
     Active Substance: OXYMETAZOLINE HYDROCHLORIDE
     Indication: NASAL CONGESTION
     Dosage: 1 SPRAY IN EACH NOSTRIL, QD, HS
     Route: 045
     Dates: start: 20131128, end: 20131130
  2. LORATADINE. [Concomitant]
     Active Substance: LORATADINE
     Indication: RHINITIS ALLERGIC
     Dosage: UNK, QD
     Route: 048
     Dates: start: 20160307

REACTIONS (5)
  - Ageusia [Not Recovered/Not Resolved]
  - Deafness [Recovered/Resolved]
  - Incorrect dose administered [Recovered/Resolved]
  - Tinnitus [Not Recovered/Not Resolved]
  - Anosmia [Not Recovered/Not Resolved]

NARRATIVE: CASE EVENT DATE: 20131128
